FAERS Safety Report 18592171 (Version 2)
Quarter: 2020Q4

REPORT INFORMATION
  Report Type: Spontaneous
  Country: US (occurrence: US)
  Receive Date: 20201209
  Receipt Date: 20201216
  Transmission Date: 20210114
  Serious: Yes (Life-Threatening, Hospitalization, Other)
  Sender: FDA-Public Use
  Company Number: US-GLENMARK PHARMACEUTICALS-2020GMK050803

PATIENT
  Age: 9 Month
  Sex: Female

DRUGS (6)
  1. FENTANYL. [Concomitant]
     Active Substance: FENTANYL
     Dosage: 3 MICROGRAM/KILOGRAM PER HOUR
     Route: 041
  2. DEXMEDETOMIDINE. [Interacting]
     Active Substance: DEXMEDETOMIDINE
     Indication: SEDATIVE THERAPY
     Dosage: 0.8 MICROGRAM/KILOGRAM PER HOUR
     Route: 040
  3. FENTANYL. [Concomitant]
     Active Substance: FENTANYL
     Dosage: 2 MICROGRAM/KILOGRAM PER HOUR
     Route: 041
  4. TACROLIMUS. [Suspect]
     Active Substance: TACROLIMUS
     Indication: PRODUCT USED FOR UNKNOWN INDICATION
     Dosage: UNK; DOSE WAS ADJUSTED TO MAIN GOAL TROUGH LEVELS 10-12; INITIATED ON POD1
     Route: 048
  5. DEXMEDETOMIDINE. [Interacting]
     Active Substance: DEXMEDETOMIDINE
     Dosage: 1 MICROGRAM/KILOGRAM PER HOUR
     Route: 041
  6. FENTANYL. [Concomitant]
     Active Substance: FENTANYL
     Indication: SEDATIVE THERAPY
     Dosage: 1 MICROGRAM/KILOGRAM PER HOUR
     Route: 041

REACTIONS (6)
  - Agitation [Recovered/Resolved]
  - Drug interaction [Unknown]
  - Drug clearance decreased [Recovered/Resolved]
  - Drug level increased [Recovered/Resolved]
  - Sinus arrest [Recovered/Resolved]
  - Sinus bradycardia [Recovered/Resolved]
